FAERS Safety Report 9883838 (Version 2)
Quarter: 2014Q1

REPORT INFORMATION
  Report Type: Spontaneous
  Country: FR (occurrence: FR)
  Receive Date: 20140210
  Receipt Date: 20140213
  Transmission Date: 20141002
  Serious: Yes (Life-Threatening, Hospitalization, Other)
  Sender: FDA-Public Use
  Company Number: FR-ELI_LILLY_AND_COMPANY-FR201401010987

PATIENT
  Age: 36 Year
  Sex: Female

DRUGS (10)
  1. ZYPREXA [Suspect]
     Indication: PRODUCT USED FOR UNKNOWN INDICATION
     Dosage: 1 DF, UNKNOWN
     Route: 048
     Dates: end: 20131203
  2. VALIUM /00017001/ [Suspect]
     Indication: PRODUCT USED FOR UNKNOWN INDICATION
     Dosage: 1 DF, UNKNOWN
     Route: 048
     Dates: end: 20131203
  3. STILNOX [Suspect]
     Indication: PRODUCT USED FOR UNKNOWN INDICATION
     Dosage: 1 DF, UNKNOWN
     Route: 048
     Dates: end: 20131203
  4. DEPAKINE /00228502/ [Suspect]
     Indication: PRODUCT USED FOR UNKNOWN INDICATION
     Dosage: 1 DF, UNKNOWN
     Route: 048
     Dates: end: 20131203
  5. TERCIAN /00759301/ [Suspect]
     Indication: PRODUCT USED FOR UNKNOWN INDICATION
     Dosage: 1 DF, UNKNOWN
     Route: 048
     Dates: end: 20131203
  6. LEVOMEPROMAZINE [Suspect]
     Indication: PRODUCT USED FOR UNKNOWN INDICATION
     Dosage: 1 DF, UNKNOWN
     Route: 048
     Dates: end: 20131203
  7. SEROPLEX [Suspect]
     Indication: PRODUCT USED FOR UNKNOWN INDICATION
     Dosage: 1 DF, UNKNOWN
     Route: 048
     Dates: end: 20131203
  8. RELPAX [Suspect]
     Indication: PRODUCT USED FOR UNKNOWN INDICATION
     Dosage: 1 DF, UNKNOWN
     Route: 048
     Dates: end: 20131203
  9. KETUM [Concomitant]
     Indication: PAIN
     Dosage: 1 DF, PRN
     Route: 065
  10. PARACETAMOL [Concomitant]
     Indication: PAIN
     Dosage: 1 DF, PRN
     Route: 065

REACTIONS (7)
  - Coma [Recovered/Resolved]
  - Disturbance in attention [Recovered/Resolved]
  - Circulatory collapse [Recovered/Resolved]
  - Oxygen saturation decreased [Unknown]
  - Hypothermia [Recovered/Resolved]
  - Pneumonia aspiration [Unknown]
  - Drug level above therapeutic [Recovering/Resolving]
